FAERS Safety Report 19041068 (Version 1)
Quarter: 2021Q1

REPORT INFORMATION
  Report Type: Other
  Country: US (occurrence: US)
  Receive Date: 20210322
  Receipt Date: 20210322
  Transmission Date: 20210420
  Serious: Yes (Other)
  Sender: FDA-Public Use
  Company Number: US-ROCHE-2794764

PATIENT
  Age: 46 Year
  Sex: Male

DRUGS (12)
  1. LISINOPRIL. [Concomitant]
     Active Substance: LISINOPRIL
  2. METFORMIN [Concomitant]
     Active Substance: METFORMIN HYDROCHLORIDE
     Indication: TYPE 2 DIABETES MELLITUS
  3. ASPIRIN. [Concomitant]
     Active Substance: ASPIRIN
  4. ACETAZOLAMIDE. [Concomitant]
     Active Substance: ACETAZOLAMIDE
  5. NIFEDIPINE. [Concomitant]
     Active Substance: NIFEDIPINE
  6. INSULIN [Concomitant]
     Active Substance: INSULIN NOS
     Indication: TYPE 2 DIABETES MELLITUS
  7. FUROSEMIDE. [Concomitant]
     Active Substance: FUROSEMIDE
  8. NAPROXEN. [Concomitant]
     Active Substance: NAPROXEN
  9. AVASTIN [Suspect]
     Active Substance: BEVACIZUMAB
     Indication: DIABETIC RETINAL OEDEMA
     Dosage: 30/JUL/2018 (L); 1.25 MG ON 24/FEB/2019, TOTAL DOSE OF 7.5 MG
     Route: 050
     Dates: start: 20180614
  10. AVASTIN [Suspect]
     Active Substance: BEVACIZUMAB
     Route: 050
     Dates: start: 20190226
  11. LUCENTIS [Suspect]
     Active Substance: RANIBIZUMAB
     Indication: DIABETIC RETINAL OEDEMA
     Dosage: RIGHT AND LEFT EYE
     Route: 050
     Dates: start: 20190625
  12. ATORVASTATIN [Concomitant]
     Active Substance: ATORVASTATIN

REACTIONS (4)
  - Tubulointerstitial nephritis [Unknown]
  - Off label use [Unknown]
  - Renal impairment [Unknown]
  - Proteinuria [Unknown]
